FAERS Safety Report 5251927-2 (Version None)
Quarter: 2007Q1

REPORT INFORMATION
  Report Type: 
  Country: None (occurrence: None)
  Receive Date: 20070223
  Receipt Date: 20070209
  Transmission Date: 20070707
  Serious: Yes (Other)
  Sender: FDA-Public Use
  Company Number: 236713

PATIENT
  Sex: Male

DRUGS (1)
  1. RITUXAN [Suspect]
     Indication: DRUG USE FOR UNKNOWN INDICATION

REACTIONS (4)
  - NEUROLOGICAL SYMPTOM [None]
  - OBSTRUCTION [None]
  - RENAL DISORDER [None]
  - RETROPERITONEAL NEOPLASM [None]
